FAERS Safety Report 15617287 (Version 1)
Quarter: 2018Q4

REPORT INFORMATION
  Report Type: Spontaneous
  Country: US (occurrence: US)
  Receive Date: 20181114
  Receipt Date: 20181114
  Transmission Date: 20190205
  Serious: Yes (Life-Threatening, Hospitalization, Disabling)
  Sender: FDA-Public Use
  Company Number: None

PATIENT
  Age: 52 Year
  Sex: Female
  Weight: 158.7 kg

DRUGS (22)
  1. POLYCARBOPHIL 625 MG [Concomitant]
  2. ALOGLIPTIN BENZOATE 25 MG [Concomitant]
  3. GABAPENTIN 800 MG [Concomitant]
     Active Substance: GABAPENTIN
  4. PHENAZOPYRIDINE 180 MG [Concomitant]
  5. PIOGLITAZONE 45 MG [Concomitant]
  6. TETRACAINE-BENZOCAINE 2-2-14% [Concomitant]
  7. SENNOSIDES 8.6 MG [Concomitant]
  8. SIMVASTATIN 40 MG [Concomitant]
     Active Substance: SIMVASTATIN
  9. INSULIN GLARGINE [Concomitant]
     Active Substance: INSULIN GLARGINE
  10. OXYBUTYNIN CR 10 MG [Concomitant]
  11. DOCUSATE 100 MG [Concomitant]
  12. ESTRADIOL 1 MG [Concomitant]
     Active Substance: ESTRADIOL
  13. METFORMIN [Concomitant]
     Active Substance: METFORMIN HYDROCHLORIDE
  14. NAPROXEN 500 MG [Concomitant]
     Active Substance: NAPROXEN
  15. CANAGLIFLOZIN [Suspect]
     Active Substance: CANAGLIFLOZIN
     Indication: TYPE 2 DIABETES MELLITUS
     Route: 048
     Dates: start: 20170512, end: 20181113
  16. OXYCODONE 5 MG [Concomitant]
  17. SODIUM HYPOCHLORITE SOLUTION 0.5% [Concomitant]
  18. ACETAMINOPHEN 325 MG [Concomitant]
     Active Substance: ACETAMINOPHEN
  19. ALBUTEOL 108 MCG/ACT [Concomitant]
  20. LEVOTHYROXINE 75 MCG [Concomitant]
  21. OMEPRAZOLE 20 MG [Concomitant]
     Active Substance: OMEPRAZOLE
  22. OXYCODONE SR 10 MG [Concomitant]

REACTIONS (3)
  - Impaired healing [None]
  - Necrotising soft tissue infection [None]
  - Intellectual disability [None]

NARRATIVE: CASE EVENT DATE: 20181113
